FAERS Safety Report 11029570 (Version 1)
Quarter: 2015Q2

REPORT INFORMATION
  Report Type: Spontaneous
  Country: US (occurrence: US)
  Receive Date: 20150415
  Receipt Date: 20150415
  Transmission Date: 20150821
  Serious: No
  Sender: FDA-Public Use
  Company Number: US-SUN PHARMACEUTICAL INDUSTRIES LTD-2014SUN01430

PATIENT

DRUGS (1)
  1. LEUPROLIDE ACETATE INJ 1MG/0.2ML [Suspect]
     Active Substance: LEUPROLIDE ACETATE
     Indication: OFF LABEL USE
     Dosage: 10 UNITS SC AS DIRECTED
     Route: 058

REACTIONS (2)
  - Injection site rash [Recovered/Resolved]
  - Product use issue [None]

NARRATIVE: CASE EVENT DATE: 20140618
